FAERS Safety Report 6178201-4 (Version None)
Quarter: 2009Q2

REPORT INFORMATION
  Report Type: 
  Country: None (occurrence: None)
  Receive Date: 20090504
  Receipt Date: 20090421
  Transmission Date: 20091009
  Serious: Yes (Death)
  Sender: FDA-Public Use
  Company Number: US-CVT-090218

PATIENT

DRUGS (1)
  1. RANEXA [Suspect]
     Indication: VENTRICULAR TACHYCARDIA
     Dates: start: 20090101

REACTIONS (1)
  - DEATH [None]
